FAERS Safety Report 21916934 (Version 25)
Quarter: 2024Q4

REPORT INFORMATION
  Report Type: Spontaneous
  Country: CA (occurrence: CA)
  Receive Date: 20230126
  Receipt Date: 20241224
  Transmission Date: 20250114
  Serious: Yes (Death, Hospitalization, Disabling, Congenital Anomaly)
  Sender: ROCHE
  Company Number: CA-ROCHE-3266197

PATIENT
  Age: 40 Year
  Sex: Female
  Weight: 96 kg

DRUGS (79)
  1. ACTEMRA [Suspect]
     Active Substance: TOCILIZUMAB
     Indication: Rheumatoid arthritis
     Dosage: THERAPY DURATION: 6 MONTHS
     Route: 042
     Dates: start: 201504, end: 20150819
  2. ACTEMRA [Suspect]
     Active Substance: TOCILIZUMAB
     Route: 042
  3. ACTEMRA [Suspect]
     Active Substance: TOCILIZUMAB
     Route: 042
  4. ACTEMRA [Suspect]
     Active Substance: TOCILIZUMAB
     Route: 042
  5. ACTEMRA [Suspect]
     Active Substance: TOCILIZUMAB
     Route: 042
  6. ACTEMRA [Suspect]
     Active Substance: TOCILIZUMAB
     Route: 042
  7. ACTEMRA [Suspect]
     Active Substance: TOCILIZUMAB
     Route: 042
  8. ACTEMRA [Suspect]
     Active Substance: TOCILIZUMAB
     Route: 042
  9. ACTEMRA [Suspect]
     Active Substance: TOCILIZUMAB
     Route: 042
  10. ACTEMRA [Suspect]
     Active Substance: TOCILIZUMAB
     Route: 042
  11. ACTEMRA [Suspect]
     Active Substance: TOCILIZUMAB
     Route: 042
  12. ACTEMRA [Suspect]
     Active Substance: TOCILIZUMAB
     Route: 042
  13. ACTEMRA [Suspect]
     Active Substance: TOCILIZUMAB
     Route: 042
  14. ACTEMRA [Suspect]
     Active Substance: TOCILIZUMAB
     Route: 042
  15. ACTEMRA [Suspect]
     Active Substance: TOCILIZUMAB
     Route: 042
  16. ACTEMRA [Suspect]
     Active Substance: TOCILIZUMAB
     Route: 042
  17. ACTEMRA [Suspect]
     Active Substance: TOCILIZUMAB
     Route: 042
  18. ACTEMRA [Suspect]
     Active Substance: TOCILIZUMAB
     Route: 042
  19. RITUXAN [Suspect]
     Active Substance: RITUXIMAB
     Indication: Rheumatoid arthritis
     Dosage: 2 DOSES
     Route: 042
     Dates: start: 201304, end: 201308
  20. ACTEMRA [Suspect]
     Active Substance: TOCILIZUMAB
     Indication: Rheumatoid arthritis
     Route: 065
  21. ACTEMRA [Suspect]
     Active Substance: TOCILIZUMAB
     Route: 065
  22. ACTEMRA [Suspect]
     Active Substance: TOCILIZUMAB
     Route: 065
  23. ACTEMRA [Suspect]
     Active Substance: TOCILIZUMAB
     Route: 061
  24. ACTEMRA [Suspect]
     Active Substance: TOCILIZUMAB
     Route: 065
  25. ACTEMRA [Suspect]
     Active Substance: TOCILIZUMAB
     Route: 065
  26. ACTEMRA [Suspect]
     Active Substance: TOCILIZUMAB
     Route: 065
  27. ACTEMRA [Suspect]
     Active Substance: TOCILIZUMAB
     Route: 016
  28. ACTEMRA [Suspect]
     Active Substance: TOCILIZUMAB
     Route: 065
  29. ACTEMRA [Suspect]
     Active Substance: TOCILIZUMAB
     Route: 065
  30. RITUXIMAB [Suspect]
     Active Substance: RITUXIMAB
     Indication: Rheumatoid arthritis
     Route: 065
  31. RITUXIMAB [Suspect]
     Active Substance: RITUXIMAB
     Route: 065
  32. RITUXIMAB [Suspect]
     Active Substance: RITUXIMAB
     Route: 065
  33. RITUXIMAB [Suspect]
     Active Substance: RITUXIMAB
     Route: 043
  34. RITUXIMAB [Suspect]
     Active Substance: RITUXIMAB
     Route: 065
  35. RITUXIMAB [Suspect]
     Active Substance: RITUXIMAB
     Route: 065
  36. RITUXIMAB [Suspect]
     Active Substance: RITUXIMAB
     Route: 065
  37. RITUXIMAB [Suspect]
     Active Substance: RITUXIMAB
     Route: 065
  38. RITUXIMAB [Suspect]
     Active Substance: RITUXIMAB
     Indication: Rheumatoid arthritis
     Route: 042
  39. RITUXIMAB [Suspect]
     Active Substance: RITUXIMAB
     Route: 042
  40. RITUXIMAB [Suspect]
     Active Substance: RITUXIMAB
     Route: 042
  41. RITUXIMAB [Suspect]
     Active Substance: RITUXIMAB
     Route: 042
  42. RITUXIMAB [Suspect]
     Active Substance: RITUXIMAB
     Route: 042
  43. RITUXIMAB [Suspect]
     Active Substance: RITUXIMAB
     Route: 042
  44. RITUXIMAB [Suspect]
     Active Substance: RITUXIMAB
     Route: 041
  45. RITUXIMAB [Suspect]
     Active Substance: RITUXIMAB
     Route: 042
  46. RITUXIMAB [Suspect]
     Active Substance: RITUXIMAB
     Route: 042
  47. RITUXIMAB [Suspect]
     Active Substance: RITUXIMAB
     Route: 042
  48. TOCILIZUMAB [Suspect]
     Active Substance: TOCILIZUMAB
     Indication: Rheumatoid arthritis
     Route: 058
  49. TOCILIZUMAB [Suspect]
     Active Substance: TOCILIZUMAB
     Route: 058
  50. TOCILIZUMAB [Suspect]
     Active Substance: TOCILIZUMAB
     Route: 058
  51. TOCILIZUMAB [Suspect]
     Active Substance: TOCILIZUMAB
     Route: 058
  52. TOCILIZUMAB [Suspect]
     Active Substance: TOCILIZUMAB
     Dosage: DOSE: 8.0 MG/KG
     Route: 058
  53. TOCILIZUMAB [Suspect]
     Active Substance: TOCILIZUMAB
     Dosage: DOSE: 8.0 MG/KG
     Route: 058
  54. TOCILIZUMAB [Suspect]
     Active Substance: TOCILIZUMAB
     Dosage: DOSE: 8.0 MG/KG
     Route: 058
  55. TOCILIZUMAB [Suspect]
     Active Substance: TOCILIZUMAB
     Dosage: DOSE: 8.0 MG/KG
     Route: 058
  56. ACTEMRA [Suspect]
     Active Substance: TOCILIZUMAB
     Indication: Rheumatoid arthritis
     Dosage: FREQUENCY TEXT:CYCLICAL
     Route: 058
  57. ACTEMRA [Suspect]
     Active Substance: TOCILIZUMAB
     Route: 058
  58. ACTEMRA [Suspect]
     Active Substance: TOCILIZUMAB
     Route: 058
  59. ACTEMRA [Suspect]
     Active Substance: TOCILIZUMAB
     Route: 058
  60. ACTEMRA [Suspect]
     Active Substance: TOCILIZUMAB
     Route: 058
  61. ACTEMRA [Suspect]
     Active Substance: TOCILIZUMAB
     Route: 058
  62. ACTEMRA [Suspect]
     Active Substance: TOCILIZUMAB
     Route: 058
  63. ACTEMRA [Suspect]
     Active Substance: TOCILIZUMAB
     Route: 058
  64. ACTEMRA [Suspect]
     Active Substance: TOCILIZUMAB
     Route: 058
  65. ACTEMRA [Suspect]
     Active Substance: TOCILIZUMAB
     Route: 058
  66. ACTEMRA [Suspect]
     Active Substance: TOCILIZUMAB
     Route: 058
  67. RITUXIMAB [Suspect]
     Active Substance: RITUXIMAB
     Indication: Rheumatoid arthritis
     Route: 058
  68. NAPROXEN [Suspect]
     Active Substance: NAPROXEN
     Indication: Product used for unknown indication
     Route: 065
  69. NAPROXEN SODIUM [Suspect]
     Active Substance: NAPROXEN SODIUM
     Indication: Rheumatoid arthritis
     Route: 065
  70. TOCILIZUMAB [Suspect]
     Active Substance: TOCILIZUMAB
     Indication: Rheumatoid arthritis
     Route: 050
  71. TOCILIZUMAB [Suspect]
     Active Substance: TOCILIZUMAB
     Route: 065
  72. TOCILIZUMAB [Suspect]
     Active Substance: TOCILIZUMAB
     Route: 016
  73. TOCILIZUMAB [Suspect]
     Active Substance: TOCILIZUMAB
     Route: 065
  74. TOCILIZUMAB [Suspect]
     Active Substance: TOCILIZUMAB
     Indication: Rheumatoid arthritis
     Route: 042
  75. TOCILIZUMAB [Suspect]
     Active Substance: TOCILIZUMAB
     Route: 042
  76. TOCILIZUMAB [Suspect]
     Active Substance: TOCILIZUMAB
     Route: 042
  77. TOCILIZUMAB [Suspect]
     Active Substance: TOCILIZUMAB
     Route: 042
  78. TOCILIZUMAB [Suspect]
     Active Substance: TOCILIZUMAB
     Dosage: DOSE: 8.0 MG/KG
     Route: 042
  79. TOCILIZUMAB [Suspect]
     Active Substance: TOCILIZUMAB
     Route: 042

REACTIONS (135)
  - Abdominal discomfort [Fatal]
  - Abdominal distension [Fatal]
  - Alopecia [Fatal]
  - Anti-cyclic citrullinated peptide antibody positive [Fatal]
  - Arthralgia [Fatal]
  - Arthropathy [Fatal]
  - Back injury [Fatal]
  - Blood cholesterol increased [Fatal]
  - C-reactive protein abnormal [Fatal]
  - C-reactive protein increased [Fatal]
  - Coeliac disease [Fatal]
  - Condition aggravated [Fatal]
  - Confusional state [Fatal]
  - Drug hypersensitivity [Fatal]
  - Drug intolerance [Fatal]
  - Drug-induced liver injury [Fatal]
  - Dyspepsia [Fatal]
  - Fall [Fatal]
  - Fatigue [Fatal]
  - Finger deformity [Fatal]
  - Gait inability [Fatal]
  - Gastrointestinal disorder [Fatal]
  - General physical health deterioration [Fatal]
  - Glossodynia [Fatal]
  - Grip strength decreased [Fatal]
  - Hand deformity [Fatal]
  - Headache [Fatal]
  - Hepatic enzyme increased [Fatal]
  - Hepatitis [Fatal]
  - Hypersensitivity [Fatal]
  - Hypertension [Fatal]
  - Inflammation [Fatal]
  - Infusion related reaction [Fatal]
  - Injection site reaction [Fatal]
  - Injury [Fatal]
  - Insomnia [Fatal]
  - Joint swelling [Fatal]
  - Liver function test increased [Fatal]
  - Loss of personal independence in daily activities [Fatal]
  - Malaise [Fatal]
  - Decreased appetite [Fatal]
  - Mobility decreased [Fatal]
  - Muscular weakness [Fatal]
  - Musculoskeletal stiffness [Fatal]
  - Nail disorder [Fatal]
  - Nausea [Fatal]
  - Neck pain [Fatal]
  - Onychomadesis [Fatal]
  - Onychomycosis [Fatal]
  - Pain [Fatal]
  - Pain in extremity [Fatal]
  - Pemphigus [Fatal]
  - Pericarditis [Fatal]
  - Pneumonia [Fatal]
  - Psoriatic arthropathy [Fatal]
  - Rash [Fatal]
  - Rheumatic fever [Fatal]
  - Rheumatoid arthritis [Fatal]
  - Sleep disorder [Fatal]
  - Swelling [Fatal]
  - Synovitis [Fatal]
  - Systemic lupus erythematosus [Fatal]
  - Therapeutic product effect decreased [Fatal]
  - Therapeutic product effect incomplete [Fatal]
  - Type 2 diabetes mellitus [Fatal]
  - Vomiting [Fatal]
  - Wound [Fatal]
  - Asthenia [Fatal]
  - Blepharospasm [Fatal]
  - Blister [Fatal]
  - Breast cancer stage III [Fatal]
  - Bursitis [Fatal]
  - Depression [Fatal]
  - Diarrhoea [Fatal]
  - Dizziness [Fatal]
  - Dry mouth [Fatal]
  - Duodenal ulcer perforation [Fatal]
  - Epilepsy [Fatal]
  - Facet joint syndrome [Fatal]
  - Fibromyalgia [Fatal]
  - Folliculitis [Fatal]
  - Gastrooesophageal reflux disease [Fatal]
  - Helicobacter infection [Fatal]
  - Hypoaesthesia [Fatal]
  - Impaired healing [Fatal]
  - Irritable bowel syndrome [Fatal]
  - Joint range of motion decreased [Fatal]
  - Lip dry [Fatal]
  - Liver injury [Fatal]
  - Lower respiratory tract infection [Fatal]
  - Lung disorder [Fatal]
  - Memory impairment [Fatal]
  - Muscle injury [Fatal]
  - Muscle spasms [Fatal]
  - Osteoarthritis [Fatal]
  - Musculoskeletal pain [Fatal]
  - Paraesthesia [Fatal]
  - Peripheral swelling [Fatal]
  - Stomatitis [Fatal]
  - Taste disorder [Fatal]
  - Urticaria [Fatal]
  - Weight increased [Fatal]
  - Wheezing [Fatal]
  - Wound infection [Fatal]
  - Hypercholesterolaemia [Fatal]
  - Night sweats [Fatal]
  - Obesity [Fatal]
  - Nasopharyngitis [Fatal]
  - Contusion [Fatal]
  - Ill-defined disorder [Fatal]
  - Pruritus [Fatal]
  - Abdominal pain upper [Fatal]
  - Migraine [Fatal]
  - Peripheral venous disease [Fatal]
  - Dyspnoea [Fatal]
  - Drug ineffective [Fatal]
  - Treatment failure [Fatal]
  - Contraindicated product administered [Fatal]
  - Overdose [Fatal]
  - Product quality issue [Fatal]
  - Maternal exposure during pregnancy [Fatal]
  - Product label confusion [Fatal]
  - Product use issue [Fatal]
  - Off label use [Fatal]
  - Intentional product use issue [Fatal]
  - Rash pruritic [Fatal]
  - Underdose [Fatal]
  - Hypercholesterolaemia [Fatal]
  - Nasopharyngitis [Fatal]
  - Obesity [Fatal]
  - Osteoarthritis [Fatal]
  - Synovitis [Fatal]
  - Red blood cell sedimentation rate abnormal [Fatal]
  - Rheumatoid factor positive [Fatal]
  - Gastrointestinal disorder [Fatal]
